FAERS Safety Report 14377479 (Version 1)
Quarter: 2018Q1

REPORT INFORMATION
  Report Type: Spontaneous
  Country: US (occurrence: US)
  Receive Date: 20180111
  Receipt Date: 20180111
  Transmission Date: 20180509
  Serious: Yes (Death)
  Sender: FDA-Public Use
  Company Number: US-HAEMONETICS CORP-2039936

PATIENT
  Age: 33 Year
  Sex: Male
  Weight: 89.09 kg

DRUGS (1)
  1. HAEMONETICS ANTICOAGULANT SODIUM CITRATE [Suspect]
     Active Substance: TRISODIUM CITRATE DIHYDRATE
     Indication: ANTICOAGULANT THERAPY
     Route: 042
     Dates: start: 20170428, end: 20170428

REACTIONS (1)
  - Coronary artery thrombosis [Fatal]

NARRATIVE: CASE EVENT DATE: 20170429
